FAERS Safety Report 23598562 (Version 1)
Quarter: 2024Q1

REPORT INFORMATION
  Report Type: Spontaneous
  Country: US (occurrence: US)
  Receive Date: 20240306
  Receipt Date: 20240306
  Transmission Date: 20240410
  Serious: Yes (Hospitalization)
  Sender: FDA-Public Use
  Company Number: US-STRIDES ARCOLAB LIMITED-2023SP018235

PATIENT

DRUGS (4)
  1. PREDNISOLONE [Suspect]
     Active Substance: PREDNISOLONE
     Indication: Immunosuppressant drug therapy
     Dosage: UNK
     Route: 065
  2. PREDNISOLONE [Suspect]
     Active Substance: PREDNISOLONE
     Indication: Solid organ transplant
     Dosage: UNK (DOSE ADJUSTED TO MAINTAIN LOWER TROUGH LEVELS)
     Route: 065
  3. TACROLIMUS [Suspect]
     Active Substance: TACROLIMUS
     Indication: Immunosuppressant drug therapy
     Dosage: UNK
     Route: 065
  4. TACROLIMUS [Suspect]
     Active Substance: TACROLIMUS
     Indication: Solid organ transplant
     Dosage: UNK (DOSE ADJUSTED TO MAINTAIN LOWER TROUGH LEVEL)
     Route: 065

REACTIONS (2)
  - Cutaneous mucormycosis [Recovered/Resolved]
  - Off label use [Unknown]
